FAERS Safety Report 17860074 (Version 3)
Quarter: 2021Q4

REPORT INFORMATION
  Report Type: Report from Study
  Country: US (occurrence: US)
  Receive Date: 20200604
  Receipt Date: 20211007
  Transmission Date: 20220303
  Serious: No
  Sender: FDA-Public Use
  Company Number: US-INCYTE CORPORATION-2018IN011518

PATIENT

DRUGS (37)
  1. JAKAFI [Suspect]
     Active Substance: RUXOLITINIB
     Indication: Myelofibrosis
     Dosage: 10 MILLIGRAM, BID
     Route: 048
     Dates: start: 20180516, end: 20180621
  2. JAKAFI [Suspect]
     Active Substance: RUXOLITINIB
     Dosage: 15 MILLIGRAM, BID
     Route: 048
     Dates: start: 20180621, end: 20181008
  3. JAKAFI [Suspect]
     Active Substance: RUXOLITINIB
     Dosage: 20 MILLIGRAM, BID
     Route: 065
     Dates: start: 20181008, end: 20190503
  4. BRINZOLAMIDE [Concomitant]
     Active Substance: BRINZOLAMIDE
     Indication: Glaucoma
     Dosage: 1 UNIT DOSE PER ADMINISTRATION
     Route: 065
     Dates: start: 20181023, end: 20181214
  5. ACYCLOVIR [Concomitant]
     Active Substance: ACYCLOVIR
     Indication: Prophylaxis
     Dosage: 400 MG, UNK
     Route: 065
     Dates: start: 20181231
  6. DORZOLAMIDE [Concomitant]
     Active Substance: DORZOLAMIDE
     Indication: Vitreous floaters
     Dosage: 1 %(V/V), UNK
     Route: 065
     Dates: start: 20181113, end: 20190717
  7. DORZOLAMIDE [Concomitant]
     Active Substance: DORZOLAMIDE
     Indication: Iridocyclitis
     Dosage: 2 PERCENT, TID
     Route: 065
     Dates: start: 20190321
  8. DORZOLAMIDE [Concomitant]
     Active Substance: DORZOLAMIDE
     Indication: Glaucoma
  9. LOSARTAN [Concomitant]
     Active Substance: LOSARTAN
     Indication: Hypertension
     Dosage: 50 MILLIGRAM, QD
     Route: 065
     Dates: start: 20130206, end: 20190319
  10. LOSARTAN [Concomitant]
     Active Substance: LOSARTAN
     Dosage: 100 MILLIGRAM, QD
     Route: 065
     Dates: start: 20190319
  11. RANITIDINE [Concomitant]
     Active Substance: RANITIDINE
     Indication: Gastrooesophageal reflux disease
     Dosage: 150 MILLIGRAM, BID
     Route: 065
     Dates: start: 20190319
  12. RANITIDINE [Concomitant]
     Active Substance: RANITIDINE
     Dosage: 300 MILLIGRAM, QD
     Route: 065
     Dates: start: 20130515, end: 20180516
  13. PREDNISOLONE ACETATE [Concomitant]
     Active Substance: PREDNISOLONE ACETATE
     Indication: Scleritis
     Dosage: 1 PERCENT
     Route: 065
     Dates: start: 20190228
  14. BRIMONIDINE TARTRATE\TIMOLOL MALEATE [Concomitant]
     Active Substance: BRIMONIDINE TARTRATE\TIMOLOL MALEATE
     Indication: Iridocyclitis
     Dosage: 0.2/0.5% BID
     Route: 065
     Dates: start: 20190326
  15. ALLOPURINOL [Concomitant]
     Active Substance: ALLOPURINOL
     Indication: Gout
     Dosage: 300 MILLIGRAM, QD
     Route: 065
     Dates: start: 20190412
  16. AMITRIPTYLINE [Concomitant]
     Active Substance: AMITRIPTYLINE
     Indication: Insomnia
     Dosage: 10 MILLIGRAM, QD
     Route: 065
     Dates: start: 20131016, end: 20180516
  17. ASPIRIN [Concomitant]
     Active Substance: ASPIRIN
     Indication: Prophylaxis
     Dosage: UNK UNK, QD
     Route: 065
     Dates: start: 20120918
  18. BENZONATATE [Concomitant]
     Active Substance: BENZONATATE
     Indication: Cough
     Dosage: 100 MILLIGRAM, PRN
     Route: 065
     Dates: start: 20171026, end: 20180214
  19. CALCIUM\CHOLECALCIFEROL [Concomitant]
     Active Substance: CALCIUM\CHOLECALCIFEROL
     Indication: Nutritional supplementation
     Dosage: 600 MILLIGRAM, QD
     Route: 065
     Dates: start: 20140326
  20. DENTA 5000 PLUS [Concomitant]
     Active Substance: SODIUM FLUORIDE
     Indication: Nutritional supplementation
     Dosage: 1.1 PERCENT, QD
     Route: 065
     Dates: start: 20170824
  21. DICLOFENAC [Concomitant]
     Active Substance: DICLOFENAC
     Indication: Arthralgia
     Dosage: 2-4 G
     Route: 065
     Dates: start: 20170417
  22. FISH OIL\OMEGA-3 FATTY ACIDS [Concomitant]
     Active Substance: FISH OIL\OMEGA-3 FATTY ACIDS
     Indication: Nutritional supplementation
     Dosage: 680/2000 MG, QD
     Route: 065
     Dates: start: 20110913
  23. HYDRALAZINE [Concomitant]
     Active Substance: HYDRALAZINE HYDROCHLORIDE
     Indication: Hypertension
     Dosage: 100 MILLIGRAM, TID
     Route: 065
     Dates: start: 20110913
  24. LATANOPROST [Concomitant]
     Active Substance: LATANOPROST
     Indication: Glaucoma
     Dosage: 0.005 PERCENT
     Route: 065
     Dates: start: 20100806
  25. LIDOCAINE [Concomitant]
     Active Substance: LIDOCAINE
     Indication: Back pain
     Dosage: 5 PERCENT
     Route: 065
     Dates: start: 20110620
  26. MINERALS\VITAMINS [Concomitant]
     Active Substance: MINERALS\VITAMINS
     Indication: Nutritional supplementation
     Dosage: 1 TABLET QD
     Route: 065
     Dates: start: 20150330
  27. OMEPRAZOLE [Concomitant]
     Active Substance: OMEPRAZOLE
     Indication: Gastrooesophageal reflux disease
     Dosage: 40 MILLIGRAM, QD
     Route: 065
     Dates: start: 20130515
  28. TRAMADOL [Concomitant]
     Active Substance: TRAMADOL
     Indication: Abdominal pain
     Dosage: 50 MILLIGRAM, PRN
     Route: 065
     Dates: start: 20130330
  29. ZOLPIDEM [Concomitant]
     Active Substance: ZOLPIDEM TARTRATE
     Indication: Insomnia
     Dosage: 5 MILLIGRAM, QD
     Route: 065
     Dates: start: 20160407
  30. ANAGRELIDE. [Concomitant]
     Active Substance: ANAGRELIDE HYDROCHLORIDE
     Indication: Essential thrombocythaemia
     Dosage: 0.5 MILLIGRAM
     Route: 065
     Dates: start: 20080208, end: 20101122
  31. ANAGRELIDE. [Concomitant]
     Active Substance: ANAGRELIDE HYDROCHLORIDE
     Dosage: 0.5 MILLIGRAM, TID
     Route: 065
     Dates: start: 20101122, end: 20131203
  32. ANAGRELIDE. [Concomitant]
     Active Substance: ANAGRELIDE HYDROCHLORIDE
     Dosage: 0.5 MILLIGRAM, BID
     Route: 065
     Dates: start: 20131203, end: 20141015
  33. ANAGRELIDE. [Concomitant]
     Active Substance: ANAGRELIDE HYDROCHLORIDE
     Dosage: 1.5 MILLIGRAM, QD
     Route: 065
     Dates: start: 20141014, end: 20150404
  34. ANAGRELIDE. [Concomitant]
     Active Substance: ANAGRELIDE HYDROCHLORIDE
     Dosage: 0.5 MILLIGRAM, BID
     Route: 065
     Dates: start: 20150404, end: 20151002
  35. ANAGRELIDE. [Concomitant]
     Active Substance: ANAGRELIDE HYDROCHLORIDE
     Dosage: 0.5 MILLIGRAM, TID
     Route: 065
     Dates: start: 20151002, end: 20160708
  36. AMITRIPTYLINE;GABAPENTIN [Concomitant]
     Indication: Neuropathy peripheral
     Dosage: 1 GRAM
     Route: 065
     Dates: start: 20180516
  37. EMU OIL [Concomitant]
     Active Substance: EMU OIL
     Indication: Neuropathy peripheral
     Dosage: 1 GRAM
     Route: 065
     Dates: start: 20180516

REACTIONS (1)
  - White blood cell count increased [Not Recovered/Not Resolved]

NARRATIVE: CASE EVENT DATE: 20180516
